FAERS Safety Report 14596402 (Version 1)
Quarter: 2018Q1

REPORT INFORMATION
  Report Type: Spontaneous
  Country: DE (occurrence: DE)
  Receive Date: 20180303
  Receipt Date: 20180303
  Transmission Date: 20180509
  Serious: Yes (Hospitalization, Other)
  Sender: FDA-Public Use
  Company Number: DE-AUROBINDO-AUR-APL-2017-10837

PATIENT
  Age: 51 Year
  Sex: Female

DRUGS (5)
  1. INTERFERON BETA NOS [Suspect]
     Active Substance: INTERFERON BETA
     Indication: PRODUCT USED FOR UNKNOWN INDICATION
     Dosage: UNK
  2. PANTOPRAZOLE SODIUM (UNKNOWN) [Suspect]
     Active Substance: PANTOPRAZOLE SODIUM
     Indication: ENCEPHALOMYELITIS
     Dosage: 20 MILLIGRAM, ONCE A DAY
     Route: 048
  3. PANTOPRAZOLE SODIUM (UNKNOWN) [Suspect]
     Active Substance: PANTOPRAZOLE SODIUM
     Indication: PROPHYLAXIS
  4. PANTOPRAZOLE SODIUM (UNKNOWN) [Suspect]
     Active Substance: PANTOPRAZOLE SODIUM
     Indication: PROPHYLAXIS AGAINST GASTROINTESTINAL ULCER
  5. COTRIMOXAZOLE [Suspect]
     Active Substance: SULFAMETHOXAZOLE\TRIMETHOPRIM
     Indication: URINARY TRACT INFECTION
     Dosage: UNK

REACTIONS (20)
  - Liver disorder [Recovered/Resolved]
  - Hepatotoxicity [Recovered/Resolved]
  - Blood bilirubin increased [Recovered/Resolved]
  - Leukoencephalomyelitis [Recovered/Resolved]
  - Hepatic function abnormal [Recovered/Resolved]
  - Hepatitis [Recovered/Resolved]
  - Prothrombin time shortened [Recovered/Resolved]
  - Jaundice [Recovered/Resolved]
  - Hepatocellular injury [Unknown]
  - Aspartate aminotransferase increased [Recovered/Resolved]
  - Hepatic infiltration eosinophilic [Recovered/Resolved]
  - Alanine aminotransferase increased [Recovered/Resolved]
  - Paraesthesia [Recovered/Resolved]
  - Inflammation [Recovered/Resolved]
  - Hepatic necrosis [Recovered/Resolved]
  - Transaminases increased [Recovered/Resolved]
  - Gamma-glutamyltransferase increased [Recovered/Resolved]
  - Hepatomegaly [Recovered/Resolved]
  - Blood alkaline phosphatase increased [Recovered/Resolved]
  - Scleral disorder [Recovered/Resolved]
